FAERS Safety Report 7774030-6 (Version None)
Quarter: 2011Q3

REPORT INFORMATION
  Report Type: 
  Country: None (occurrence: None)
  Receive Date: 20110923
  Receipt Date: 20110920
  Transmission Date: 20111222
  Serious: Yes (Other)
  Sender: FDA-Public Use
  Company Number: US-PFIZER INC-2011223412

PATIENT
  Age: 72 Year
  Sex: Female
  Weight: 77.1 kg

DRUGS (1)
  1. NEURONTIN [Suspect]
     Indication: PAIN IN EXTREMITY
     Dosage: 100 MG, 3X/DAY
     Route: 048
     Dates: start: 20110913

REACTIONS (2)
  - SOMNOLENCE [None]
  - DRUG EFFECT DECREASED [None]
